FAERS Safety Report 14112645 (Version 1)
Quarter: 2017Q4

REPORT INFORMATION
  Report Type: Spontaneous
  Country: US (occurrence: US)
  Receive Date: 20171021
  Receipt Date: 20171021
  Transmission Date: 20180321
  Serious: No
  Sender: FDA-Public Use
  Company Number: US-009507513-1710USA003581

PATIENT
  Age: 23 Year
  Sex: Female
  Weight: 50.8 kg

DRUGS (3)
  1. NEXPLANON [Suspect]
     Active Substance: ETONOGESTREL
     Dosage: 1 DF, UNK
     Route: 058
     Dates: start: 201408, end: 20170926
  2. NEXPLANON [Suspect]
     Active Substance: ETONOGESTREL
     Dosage: 1 DF, UNK (1ST IMPLANT)
     Route: 059
  3. NEXPLANON [Suspect]
     Active Substance: ETONOGESTREL
     Dosage: 1 DF, UNK (2ND IMPLANT)
     Route: 059

REACTIONS (5)
  - Complication associated with device [Recovered/Resolved]
  - Incorrect drug administration duration [Unknown]
  - Device difficult to use [Recovered/Resolved]
  - Device deployment issue [Recovered/Resolved]
  - Medication error [Unknown]

NARRATIVE: CASE EVENT DATE: 201408
